FAERS Safety Report 19506942 (Version 2)
Quarter: 2021Q3

REPORT INFORMATION
  Report Type: Report from Study
  Country: US (occurrence: US)
  Receive Date: 20210708
  Receipt Date: 20210726
  Transmission Date: 20211014
  Serious: Yes (Other)
  Sender: FDA-Public Use
  Company Number: US-BAYER-2021-134042

PATIENT
  Age: 63 Year
  Sex: Male

DRUGS (1)
  1. VITRAKVI [Suspect]
     Active Substance: LAROTRECTINIB
     Indication: THYROID CANCER
     Dosage: 100 MG, BID
     Route: 048
     Dates: start: 20210427

REACTIONS (6)
  - Hypervigilance [Not Recovered/Not Resolved]
  - Nail discolouration [Not Recovered/Not Resolved]
  - Lung disorder [Not Recovered/Not Resolved]
  - Rash [Not Recovered/Not Resolved]
  - Salivary gland pain [Not Recovered/Not Resolved]
  - Respiratory tract congestion [Not Recovered/Not Resolved]

NARRATIVE: CASE EVENT DATE: 20210507
